FAERS Safety Report 23407073 (Version 1)
Quarter: 2024Q1

REPORT INFORMATION
  Report Type: Spontaneous
  Country: US (occurrence: US)
  Receive Date: 20240116
  Receipt Date: 20240116
  Transmission Date: 20240410
  Serious: No
  Sender: FDA-Public Use
  Company Number: US-BIOMARINAP-US-2024-155073

PATIENT

DRUGS (1)
  1. VOXZOGO [Suspect]
     Active Substance: VOSORITIDE
     Indication: Osteochondrodysplasia
     Dosage: 0.25 MILLILITER, QD
     Route: 058
     Dates: start: 20231220, end: 20231229

REACTIONS (8)
  - Ear infection [Unknown]
  - Chills [Unknown]
  - Pyrexia [Recovered/Resolved]
  - Tremor [Unknown]
  - Lip discolouration [Unknown]
  - Fatigue [Unknown]
  - Diarrhoea [Unknown]
  - Respiration abnormal [Unknown]
